FAERS Safety Report 14629743 (Version 1)
Quarter: 2018Q1

REPORT INFORMATION
  Report Type: Spontaneous
  Country: FR (occurrence: FR)
  Receive Date: 20180313
  Receipt Date: 20180313
  Transmission Date: 20180509
  Serious: Yes (Hospitalization)
  Sender: FDA-Public Use
  Company Number: FR-MERCK KGAA-2043601

PATIENT
  Age: 80 Year
  Sex: Female

DRUGS (1)
  1. NOVOTHYROX [Suspect]
     Active Substance: LEVOTHYROXINE SODIUM
     Indication: PRODUCT USED FOR UNKNOWN INDICATION
     Dates: start: 2017

REACTIONS (16)
  - Anxiety [None]
  - Aggression [None]
  - Hyperhidrosis [None]
  - Stress [None]
  - Loss of personal independence in daily activities [None]
  - Insomnia [None]
  - Depression [None]
  - Blood thyroid stimulating hormone increased [None]
  - Asthenia [None]
  - Diarrhoea [None]
  - Mood swings [None]
  - Fatigue [None]
  - Pelvic pain [None]
  - Abdominal pain [None]
  - Alopecia [None]
  - Abdominal distension [None]

NARRATIVE: CASE EVENT DATE: 2017
